FAERS Safety Report 17898732 (Version 1)
Quarter: 2020Q2

REPORT INFORMATION
  Report Type: Spontaneous
  Country: MM (occurrence: MM)
  Receive Date: 20200615
  Receipt Date: 20200615
  Transmission Date: 20200714
  Serious: Yes (Other)
  Sender: FDA-Public Use
  Company Number: MM-GE HEALTHCARE LIFE SCIENCES-2020CSU002431

PATIENT

DRUGS (1)
  1. OMNIPAQUE [Suspect]
     Active Substance: IOHEXOL
     Dosage: 80 ML, SINGLE
     Route: 042
     Dates: start: 20200608, end: 20200608

REACTIONS (3)
  - Pyrexia [Recovered/Resolved]
  - Hypoglycaemia [Recovered/Resolved]
  - Chills [Recovered/Resolved]

NARRATIVE: CASE EVENT DATE: 20200608
